FAERS Safety Report 10087041 (Version 1)
Quarter: 2014Q2

REPORT INFORMATION
  Report Type: Spontaneous
  Country: US (occurrence: US)
  Receive Date: 20140418
  Receipt Date: 20140418
  Transmission Date: 20141212
  Serious: No
  Sender: FDA-Public Use
  Company Number: US-PFIZER INC-2014109396

PATIENT
  Age: 67 Year
  Sex: Female
  Weight: 61.22 kg

DRUGS (2)
  1. LYRICA [Suspect]
     Indication: BURNING SENSATION
     Dosage: 50 MG, UNK
     Route: 048
     Dates: start: 2012
  2. LYRICA [Suspect]
     Indication: NEURALGIA

REACTIONS (1)
  - Drug intolerance [Unknown]
